FAERS Safety Report 16252354 (Version 3)
Quarter: 2019Q4

REPORT INFORMATION
  Report Type: Spontaneous
  Country: US (occurrence: US)
  Receive Date: 20190429
  Receipt Date: 20191218
  Transmission Date: 20200122
  Serious: Yes (Hospitalization, Other)
  Sender: FDA-Public Use
  Company Number: US-PFIZER INC-2019179381

PATIENT
  Age: 66 Year
  Sex: Male
  Weight: 136 kg

DRUGS (5)
  1. METOPROLOL. [Suspect]
     Active Substance: METOPROLOL
     Dosage: 25 MG, 2X/DAY
  2. ELIQUIS [Suspect]
     Active Substance: APIXABAN
     Dosage: 5 MILLIGRAM, BID
     Route: 065
  3. LYRICA [Suspect]
     Active Substance: PREGABALIN
     Indication: NERVE INJURY
     Dosage: 150 MG, 2X/DAY
  4. LIPITOR [Suspect]
     Active Substance: ATORVASTATIN CALCIUM
     Dosage: 40 MG, 3X/DAY (EVERY 8 HOURS)
  5. DILTIAZEM. [Suspect]
     Active Substance: DILTIAZEM
     Dosage: 240 MG, 2X/DAY (2 PILLS EVERY 12 HOURS)

REACTIONS (1)
  - Gangrene [Recovering/Resolving]

NARRATIVE: CASE EVENT DATE: 2018
